FAERS Safety Report 4738272-6 (Version None)
Quarter: 2005Q3

REPORT INFORMATION
  Report Type: 
  Country: None (occurrence: None)
  Receive Date: 20050803
  Receipt Date: 20050726
  Transmission Date: 20060218
  Serious: Yes (Death)
  Sender: FDA-Public Use
  Company Number: SEWYE863928JUL05

PATIENT
  Age: 49 Year
  Sex: Female

DRUGS (3)
  1. EFFEXOR [Suspect]
     Indication: DEPRESSION
     Dosage: 300 MG DAILY, ORAL
     Route: 048
     Dates: start: 20050401
  2. ALOPAM      (OXAZEPAM) [Concomitant]
  3. PRIMPERAN TAB [Concomitant]

REACTIONS (1)
  - SUDDEN DEATH [None]
